FAERS Safety Report 20834487 (Version 1)
Quarter: 2022Q2

REPORT INFORMATION
  Report Type: Report from Study
  Country: CN (occurrence: CN)
  Receive Date: 20220516
  Receipt Date: 20220516
  Transmission Date: 20220720
  Serious: Yes (Death)
  Sender: FDA-Public Use
  Company Number: CN-PFIZER INC-202200703347

PATIENT
  Age: 57 Year
  Sex: Male

DRUGS (10)
  1. PACLITAXEL [Suspect]
     Active Substance: PACLITAXEL
     Indication: Non-small cell lung cancer
     Dosage: 200 MG/M2, EVERY 3 WEEKS, FORMULATION: INFUSION
     Route: 042
     Dates: start: 20210928, end: 20210928
  2. PACLITAXEL [Suspect]
     Active Substance: PACLITAXEL
     Dosage: 200 MG/M2, EVERY 3 WEEKS, FORMULATION: INFUSION
     Route: 042
     Dates: start: 20211028, end: 20211028
  3. CLONAZEPAM [Suspect]
     Active Substance: CLONAZEPAM
     Dosage: 200 MG/M2, EVERY 3 WEEKS, FORMULATION: INFUSION
     Route: 042
     Dates: start: 20211118, end: 20211118
  4. CARBOPLATIN [Suspect]
     Active Substance: CARBOPLATIN
     Indication: Non-small cell lung cancer
     Dosage: DOSE TEXT: 6 AUC EVERY THREE WEEKS, FORMULATION: INFUSION
     Route: 042
     Dates: start: 20210928, end: 20210928
  5. CARBOPLATIN [Suspect]
     Active Substance: CARBOPLATIN
     Dosage: DOSE TEXT: 6 AUC EVERY THREE WEEKS, FORMULATION: INFUSION
     Route: 042
     Dates: start: 20211028, end: 20211028
  6. CARBOPLATIN [Suspect]
     Active Substance: CARBOPLATIN
     Dosage: DOSE TEXT: 6 AUC EVERY THREE WEEKS, FORMULATION: INFUSION
     Route: 042
     Dates: start: 20211118, end: 20211118
  7. INVESTIGATIONAL PRODUCT [Suspect]
     Active Substance: INVESTIGATIONAL PRODUCT
     Indication: Non-small cell lung cancer
     Dosage: 1500 MG Q3WK, FORMULATION: INFUSION
     Route: 042
     Dates: start: 20210928, end: 20210928
  8. INVESTIGATIONAL PRODUCT [Suspect]
     Active Substance: INVESTIGATIONAL PRODUCT
     Dosage: 1500 MG Q3WK, FORMULATION: INFUSION
     Route: 042
     Dates: start: 20211028, end: 20211028
  9. INVESTIGATIONAL PRODUCT [Suspect]
     Active Substance: INVESTIGATIONAL PRODUCT
     Dosage: 1500 MG Q3WK, FORMULATION: INFUSION
     Route: 042
     Dates: start: 20211118, end: 20211118
  10. BIFENDATE [Concomitant]
     Active Substance: BIFENDATE
     Indication: Prophylaxis
     Dosage: 7.5 MG, 3X/DAY (Q8H)
     Route: 048
     Dates: start: 20211027

REACTIONS (1)
  - Haemoptysis [Fatal]

NARRATIVE: CASE EVENT DATE: 20211213
